FAERS Safety Report 21651184 (Version 1)
Quarter: 2022Q4

REPORT INFORMATION
  Report Type: Spontaneous
  Country: US (occurrence: None)
  Receive Date: 20221126
  Receipt Date: 20221126
  Transmission Date: 20230112
  Serious: Yes (Other)
  Sender: FDA-Public Use
  Company Number: None

PATIENT
  Age: 29 Year
  Sex: Female

DRUGS (1)
  1. ORILISSA [Suspect]
     Active Substance: ELAGOLIX SODIUM
     Indication: Endometriosis

REACTIONS (6)
  - Haemorrhage [None]
  - Anxiety disorder [None]
  - Affective disorder [None]
  - Sensory disturbance [None]
  - Suicidal ideation [None]
  - Thinking abnormal [None]
